FAERS Safety Report 6374590-6 (Version None)
Quarter: 2009Q3

REPORT INFORMATION
  Report Type: 
  Country: None (occurrence: None)
  Receive Date: 20090924
  Receipt Date: 20090716
  Transmission Date: 20100115
  Serious: No
  Sender: FDA-Public Use
  Company Number: US-ASTRAZENECA-2009UW20147

PATIENT
  Age: 49 Year
  Sex: Male
  Weight: 72.6 kg

DRUGS (4)
  1. SEROQUEL [Suspect]
     Indication: AFFECTIVE DISORDER
     Route: 048
  2. SEROQUEL [Suspect]
     Route: 048
  3. LEXAPRO [Concomitant]
  4. BENZOTROPINE [Concomitant]

REACTIONS (2)
  - DRUG DEPENDENCE [None]
  - INSOMNIA [None]
